FAERS Safety Report 25548985 (Version 4)
Quarter: 2025Q4

REPORT INFORMATION
  Report Type: Spontaneous
  Country: US (occurrence: US)
  Receive Date: 20250714
  Receipt Date: 20251015
  Transmission Date: 20260118
  Serious: No
  Sender: BLUEPRINT MEDICINES
  Company Number: US-Blueprint Medicines Corporation-2025-AER-01501

PATIENT
  Age: 38 Year
  Sex: Female

DRUGS (2)
  1. AYVAKIT [Suspect]
     Active Substance: AVAPRITINIB
     Indication: Systemic mastocytosis
     Route: 065
     Dates: start: 20250702
  2. AYVAKIT [Suspect]
     Active Substance: AVAPRITINIB
     Indication: Indolent systemic mastocytosis
     Dosage: IN THE MORNING
     Route: 065
     Dates: start: 20250702

REACTIONS (9)
  - Nausea [Unknown]
  - Headache [Unknown]
  - Depressed mood [Unknown]
  - Bone pain [Unknown]
  - Fatigue [Unknown]
  - Stress [Unknown]
  - Dyspnoea [Unknown]
  - Secretion discharge [Unknown]
  - Temperature intolerance [Unknown]
